FAERS Safety Report 4355028-7 (Version None)
Quarter: 2004Q2

REPORT INFORMATION
  Report Type: 
  Country: None (occurrence: None)
  Receive Date: 20040504
  Receipt Date: 20040426
  Transmission Date: 20050107
  Serious: Yes (Disabling)
  Sender: FDA-Public Use
  Company Number: 04P-167-0258927-00

PATIENT
  Age: 87 Year
  Sex: Male
  Weight: 70 kg

DRUGS (6)
  1. BIAXIN [Suspect]
     Indication: PNEUMONIA
     Dosage: 500 MG, 2 IN 1 D, ORAL
     Route: 048
     Dates: start: 20040323, end: 20040330
  2. BROMOCRIPTINE MESYLATE [Concomitant]
     Indication: PROLACTINOMA
     Dosage: 5 MG, 1 IN 1 D, ORAL
     Route: 048
     Dates: start: 19970101
  3. ASPIRIN [Concomitant]
  4. ALENDRONATE SODIUM [Concomitant]
  5. HYDROCORTISONE [Concomitant]
  6. ACETAMINOPHEN [Concomitant]

REACTIONS (2)
  - CHOREA [None]
  - DRUG TOXICITY [None]
